FAERS Safety Report 5834263-2 (Version None)
Quarter: 2008Q3

REPORT INFORMATION
  Report Type: 
  Country: None (occurrence: None)
  Receive Date: 20080805
  Receipt Date: 20080728
  Transmission Date: 20090109
  Serious: Yes (Hospitalization, Other)
  Sender: FDA-Public Use
  Company Number: PHEH2008US06497

PATIENT
  Sex: Female
  Weight: 250 kg

DRUGS (2)
  1. SANDOSTATIN [Suspect]
     Indication: ACROMEGALY
     Dosage: INTERMITTENTLY
  2. SANDOSTATIN [Suspect]
     Dosage: 50 UG, TID
     Route: 058
     Dates: start: 20080708, end: 20080709

REACTIONS (9)
  - ABDOMINAL PAIN [None]
  - ABDOMINAL PAIN UPPER [None]
  - ANAPHYLACTIC REACTION [None]
  - BLOOD GROWTH HORMONE INCREASED [None]
  - CHOLECYSTECTOMY [None]
  - DIARRHOEA [None]
  - DYSPNOEA [None]
  - HYPERHIDROSIS [None]
  - INSULIN-LIKE GROWTH FACTOR INCREASED [None]
